FAERS Safety Report 13202613 (Version 1)
Quarter: 2017Q1

REPORT INFORMATION
  Report Type: Spontaneous
  Country: US (occurrence: US)
  Receive Date: 20170208
  Receipt Date: 20170208
  Transmission Date: 20170428
  Serious: No
  Sender: FDA-Public Use
  Company Number: US-AEGERION PHARMACEUTICAL INC.-AEGR002805

PATIENT
  Sex: Female

DRUGS (1)
  1. MYALEPT [Suspect]
     Active Substance: METRELEPTIN
     Indication: LIPODYSTROPHY ACQUIRED
     Dosage: 9 MG, 1/2 DOSE EACH INTO 2 DIFFERENT SITES, Q12H
     Route: 058
     Dates: start: 201411

REACTIONS (2)
  - Injection site pruritus [Unknown]
  - Injection site reaction [Unknown]
